FAERS Safety Report 8915351 (Version 1)
Quarter: 2012Q4

REPORT INFORMATION
  Report Type: 
  Country: CA (occurrence: CA)
  Receive Date: 20121116
  Receipt Date: 20121116
  Transmission Date: 20130627
  Serious: Yes (Hospitalization, Other)
  Sender: FDA-Public Use
  Company Number: CA-ELI_LILLY_AND_COMPANY-CA201211002172

PATIENT
  Age: 60 Year
  Sex: Male

DRUGS (2)
  1. BYETTA [Suspect]
     Dosage: 5 ug, unknown
     Dates: start: 20121025
  2. LANTUS [Concomitant]

REACTIONS (3)
  - Chest pain [Unknown]
  - Hypoaesthesia [Unknown]
  - Antibody test abnormal [Unknown]
